FAERS Safety Report 12707150 (Version 1)
Quarter: 2016Q3

REPORT INFORMATION
  Report Type: Spontaneous
  Country: US (occurrence: US)
  Receive Date: 20160901
  Receipt Date: 20160901
  Transmission Date: 20161109
  Serious: Yes (Other)
  Sender: FDA-Public Use
  Company Number: US-AMGEN-USASP2016115364

PATIENT
  Age: 79 Year
  Sex: Male

DRUGS (1)
  1. NPLATE [Suspect]
     Active Substance: ROMIPLOSTIM
     Indication: PRODUCT USED FOR UNKNOWN INDICATION
     Dosage: 1350 MUG, UNK
     Route: 065

REACTIONS (3)
  - Myelodysplastic syndrome [Unknown]
  - Overdose [Unknown]
  - Platelet count abnormal [Unknown]
